FAERS Safety Report 12416281 (Version 2)
Quarter: 2016Q2

REPORT INFORMATION
  Report Type: Spontaneous
  Country: FR (occurrence: FR)
  Receive Date: 20160530
  Receipt Date: 20160601
  Transmission Date: 20160815
  Serious: Yes (Death, Hospitalization)
  Sender: FDA-Public Use
  Company Number: FR-PFIZER INC-2016269585

PATIENT
  Age: 99 Year
  Sex: Female

DRUGS (10)
  1. ALDACTONE [Suspect]
     Active Substance: SPIRONOLACTONE
     Dosage: 12.5 MG, 1X/DAY
     Route: 048
  2. DIFFU K [Suspect]
     Active Substance: POTASSIUM CHLORIDE
     Dosage: 3 DF, 1X/DAY
     Route: 048
  3. COVERSYL /00790702/ [Suspect]
     Active Substance: PERINDOPRIL
     Dosage: 2.5 MG, 1X/DAY
     Route: 048
  4. PAROXETINE. [Suspect]
     Active Substance: PAROXETINE
     Dosage: 1 DF, 1X/DAY
     Route: 048
  5. NITRIDERM [Suspect]
     Active Substance: NITROGLYCERIN
     Route: 062
  6. KARDEGIC [Suspect]
     Active Substance: ASPIRIN LYSINE
     Route: 048
  7. LEXOMIL [Suspect]
     Active Substance: BROMAZEPAM
     Route: 048
  8. CARTEOL /00422901/ [Suspect]
     Active Substance: ATENOLOL
     Route: 047
  9. LASILIX /00032601/ [Suspect]
     Active Substance: FUROSEMIDE
     Dosage: 40 MG IN THE MORNING AND 10 MG AT NOON
     Route: 048
  10. METEOSPASMYL [Suspect]
     Active Substance: ALVERINE CITRATE\DIMETHICONE
     Route: 048

REACTIONS (3)
  - Hyponatraemia [Fatal]
  - Hypoosmolar state [Fatal]
  - Acute kidney injury [Fatal]

NARRATIVE: CASE EVENT DATE: 20160502
